FAERS Safety Report 14045058 (Version 2)
Quarter: 2017Q4

REPORT INFORMATION
  Report Type: Spontaneous
  Country: US (occurrence: US)
  Receive Date: 20171005
  Receipt Date: 20171016
  Transmission Date: 20180321
  Serious: Yes (Other)
  Sender: FDA-Public Use
  Company Number: US-LEXICON PHARMACEUTICALS, INC-17-1606-00929

PATIENT
  Sex: Female

DRUGS (30)
  1. CRANBERRY EXTRACT [Concomitant]
     Active Substance: CRANBERRY JUICE
  2. ENBREL [Concomitant]
     Active Substance: ETANERCEPT
  3. LORAZEPAM. [Concomitant]
     Active Substance: LORAZEPAM
  4. PROCTOSOL [Concomitant]
  5. SERTRALINE [Concomitant]
     Active Substance: SERTRALINE HYDROCHLORIDE
  6. MULTIVITAMINS/FLUORIDE [Concomitant]
  7. NEURONTIN [Concomitant]
     Active Substance: GABAPENTIN
  8. PROMETHAZINE [Concomitant]
     Active Substance: PROMETHAZINE\PROMETHAZINE HYDROCHLORIDE
  9. SAVELLA [Concomitant]
     Active Substance: MILNACIPRAN HYDROCHLORIDE
  10. TELOTRISTAT ETHYL [Suspect]
     Active Substance: TELOTRISTAT ETHYL
     Route: 048
     Dates: start: 201705, end: 2017
  11. SANDOSTATIN LAR DEPOT [Concomitant]
     Active Substance: OCTREOTIDE ACETATE
  12. LORATIDINE [Concomitant]
     Active Substance: LORATADINE
  13. PROPRANOLOL [Concomitant]
     Active Substance: PROPRANOLOL HYDROCHLORIDE
  14. SUMATRIPTAN. [Concomitant]
     Active Substance: SUMATRIPTAN
  15. TELOTRISTAT ETHYL [Suspect]
     Active Substance: TELOTRISTAT ETHYL
     Indication: CARCINOID TUMOUR OF THE SMALL BOWEL
     Route: 048
     Dates: start: 20170406, end: 201705
  16. DICYCLOMINE [Concomitant]
     Active Substance: DICYCLOMINE HYDROCHLORIDE
  17. GAS-X [Concomitant]
     Active Substance: DIMETHICONE
  18. LEVOTHYROXINE. [Concomitant]
     Active Substance: LEVOTHYROXINE
  19. VITAMIN C [Concomitant]
     Active Substance: ASCORBIC ACID
  20. WELLBUTRIN [Concomitant]
     Active Substance: BUPROPION HYDROCHLORIDE
  21. VITAMIN B [Concomitant]
     Active Substance: VITAMIN B
  22. VITAMIN D3 COMPLETE [Concomitant]
  23. TELOTRISTAT ETHYL [Suspect]
     Active Substance: TELOTRISTAT ETHYL
     Route: 048
     Dates: start: 2017
  24. BLACK COHOSH EXTRACT [Concomitant]
  25. DULERA [Concomitant]
     Active Substance: FORMOTEROL FUMARATE DIHYDRATE\MOMETASONE FUROATE
  26. OXYCODONE-ACETAMINOPHEN [Concomitant]
     Active Substance: ACETAMINOPHEN\OXYCODONE HYDROCHLORIDE
  27. WELCHOL [Concomitant]
     Active Substance: COLESEVELAM HYDROCHLORIDE
  28. LOSARTAN POTASSIUM. [Concomitant]
     Active Substance: LOSARTAN POTASSIUM
  29. ONDANSETRON [Concomitant]
     Active Substance: ONDANSETRON
  30. TRAZODONE [Concomitant]
     Active Substance: TRAZODONE HYDROCHLORIDE

REACTIONS (2)
  - Off label use [Recovered/Resolved]
  - Ovarian mass [Not Recovered/Not Resolved]

NARRATIVE: CASE EVENT DATE: 2017
